FAERS Safety Report 5167060-4 (Version None)
Quarter: 2006Q4

REPORT INFORMATION
  Report Type: 
  Country: None (occurrence: None)
  Receive Date: 20061130
  Receipt Date: 20030807
  Transmission Date: 20070319
  Serious: Yes (Other)
  Sender: FDA-Public Use
  Company Number: 23100338

PATIENT
  Age: 79 Year
  Sex: Female

DRUGS (1)
  1. ARGATROBAN [Suspect]
     Indication: DEEP VEIN THROMBOSIS

REACTIONS (2)
  - INCORRECT DRUG ADMINISTRATION RATE [None]
  - MEDICATION ERROR [None]
